FAERS Safety Report 19935135 (Version 1)
Quarter: 2021Q4

REPORT INFORMATION
  Report Type: Spontaneous
  Country: US (occurrence: US)
  Receive Date: 20211008
  Receipt Date: 20211008
  Transmission Date: 20220304
  Serious: No
  Sender: FDA-Public Use
  Company Number: US-SA-SAC20211001000351

PATIENT
  Sex: Female

DRUGS (2)
  1. NASACORT [Suspect]
     Active Substance: TRIAMCINOLONE ACETONIDE
     Dosage: 2 DF
  2. NASACORT [Suspect]
     Active Substance: TRIAMCINOLONE ACETONIDE
     Dosage: 1 DF

REACTIONS (1)
  - Epistaxis [Unknown]
